FAERS Safety Report 18153526 (Version 1)
Quarter: 2020Q3

REPORT INFORMATION
  Report Type: Report from Study
  Country: CO (occurrence: CO)
  Receive Date: 20200816
  Receipt Date: 20200816
  Transmission Date: 20201103
  Serious: Yes (Hospitalization)
  Sender: FDA-Public Use
  Company Number: NVSC2020CO024029

PATIENT
  Sex: Female
  Weight: 64 kg

DRUGS (2)
  1. REVOLADE [Suspect]
     Active Substance: ELTROMBOPAG
     Indication: IMMUNE THROMBOCYTOPENIA
     Dosage: 25 MG, QD
     Route: 048
     Dates: start: 20190411
  2. REVOLADE [Suspect]
     Active Substance: ELTROMBOPAG
     Dosage: UNK
     Route: 048

REACTIONS (8)
  - Abdominal distension [Unknown]
  - Dizziness [Unknown]
  - General physical health deterioration [Unknown]
  - Pain in extremity [Unknown]
  - Polycystic ovaries [Unknown]
  - Vaginal haemorrhage [Unknown]
  - Platelet count decreased [Unknown]
  - Listless [Unknown]
